FAERS Safety Report 23221261 (Version 4)
Quarter: 2023Q4

REPORT INFORMATION
  Report Type: Report from Study
  Country: GB (occurrence: GB)
  Receive Date: 20231123
  Receipt Date: 20231130
  Transmission Date: 20240109
  Serious: Yes (Other)
  Sender: FDA-Public Use
  Company Number: GB-UCBSA-2023055023

PATIENT
  Sex: Female

DRUGS (2)
  1. CERTOLIZUMAB PEGOL [Suspect]
     Active Substance: CERTOLIZUMAB PEGOL
     Indication: Psoriatic arthropathy
     Dosage: 200 MILLIGRAM, EV 2 WEEKS(QOW)
     Route: 058
  2. CERTOLIZUMAB PEGOL [Suspect]
     Active Substance: CERTOLIZUMAB PEGOL
     Dosage: 400 MILLIGRAM, EV 2 WEEKS(QOW)
     Route: 058

REACTIONS (6)
  - Psoriatic arthropathy [Unknown]
  - Fear of injection [Not Recovered/Not Resolved]
  - Intentional dose omission [Unknown]
  - Product prescribing issue [Unknown]
  - Therapy interrupted [Unknown]
  - Off label use [Unknown]
